FAERS Safety Report 9579336 (Version 1)
Quarter: 2013Q4

REPORT INFORMATION
  Report Type: Spontaneous
  Country: US (occurrence: US)
  Receive Date: 20131001
  Receipt Date: 20131001
  Transmission Date: 20140711
  Serious: No
  Sender: FDA-Public Use
  Company Number: US-AMGEN-USASP2013017551

PATIENT
  Age: 61 Year
  Sex: Female
  Weight: 79.82 kg

DRUGS (7)
  1. ENBREL [Suspect]
     Indication: RHEUMATOID ARTHRITIS
     Dosage: 50 MG, QWK
     Route: 058
  2. METHOTREXATE [Concomitant]
     Dosage: 20 MG, UNK
  3. FOLIC ACID [Concomitant]
     Dosage: UNK
  4. NAPROXEN [Concomitant]
     Dosage: 250 MG, UNK
  5. VITAMIN C                          /00008001/ [Concomitant]
     Dosage: 1000 MG, UNK
  6. VITAMIN D                          /00107901/ [Concomitant]
     Dosage: 1000 UNIT, UNK
  7. VITAMIN B12                        /00056201/ [Concomitant]
     Dosage: 1000 MUG, UNK

REACTIONS (1)
  - Nasopharyngitis [Unknown]
